FAERS Safety Report 8586252-5 (Version None)
Quarter: 2012Q3

REPORT INFORMATION
  Report Type: 
  Country: None (occurrence: None)
  Receive Date: 20120810
  Receipt Date: 20120802
  Transmission Date: 20120928
  Serious: Yes (Hospitalization)
  Sender: FDA-Public Use
  Company Number: FR-ROCHE-1096496

PATIENT
  Sex: Male

DRUGS (4)
  1. PREDNISONE TAB [Concomitant]
  2. THIOVALONE [Concomitant]
  3. CLONAZEPAM [Suspect]
     Indication: HICCUPS
     Dosage: HALF BOTTLE
     Route: 048
     Dates: start: 20120517, end: 20120517
  4. CEFIXIME [Concomitant]

REACTIONS (1)
  - CEREBELLAR SYNDROME [None]
